FAERS Safety Report 16079629 (Version 1)
Quarter: 2019Q1

REPORT INFORMATION
  Report Type: Spontaneous
  Country: CH (occurrence: CH)
  Receive Date: 20190315
  Receipt Date: 20190315
  Transmission Date: 20190418
  Serious: Yes (Other)
  Sender: FDA-Public Use
  Company Number: PHHY2019CH054370

PATIENT
  Age: 59 Year
  Sex: Male

DRUGS (9)
  1. LEVETIRACETAM. [Suspect]
     Active Substance: LEVETIRACETAM
     Indication: PARTIAL SEIZURES
  2. OXCARBAZEPINE SANDOZ [Suspect]
     Active Substance: OXCARBAZEPINE
     Indication: ENCEPHALOPATHY
     Route: 065
  3. VALPROIC ACID SANDOZ [Suspect]
     Active Substance: VALPROIC ACID
     Indication: PARTIAL SEIZURES
  4. LEVETIRACETAM. [Suspect]
     Active Substance: LEVETIRACETAM
     Indication: ENCEPHALOPATHY
     Route: 065
  5. VALPROIC ACID SANDOZ [Suspect]
     Active Substance: VALPROIC ACID
     Indication: ENCEPHALOPATHY
     Route: 065
  6. PREGABALIN. [Suspect]
     Active Substance: PREGABALIN
     Indication: ENCEPHALOPATHY
     Route: 065
  7. PREGABALIN. [Suspect]
     Active Substance: PREGABALIN
     Indication: PARTIAL SEIZURES
  8. METHYLPREDNISOLONE. [Concomitant]
     Active Substance: METHYLPREDNISOLONE
     Indication: PARTIAL SEIZURES
     Dosage: 1 G, TID, 3 DAYS THEN ORAL
     Route: 042
  9. OXCARBAZEPINE SANDOZ [Suspect]
     Active Substance: OXCARBAZEPINE
     Indication: PARTIAL SEIZURES

REACTIONS (1)
  - Drug ineffective [Unknown]
